FAERS Safety Report 16761549 (Version 1)
Quarter: 2019Q3

REPORT INFORMATION
  Report Type: Spontaneous
  Country: AU (occurrence: AU)
  Receive Date: 20190830
  Receipt Date: 20190830
  Transmission Date: 20191005
  Serious: Yes (Other)
  Sender: FDA-Public Use
  Company Number: PHHY2019AU198592

PATIENT
  Age: 74 Year
  Sex: Male

DRUGS (1)
  1. PAZOPANIB [Suspect]
     Active Substance: PAZOPANIB
     Indication: RENAL CELL CARCINOMA
     Dosage: 800 MG, QD
     Route: 065

REACTIONS (8)
  - Pleural effusion [Unknown]
  - Malignant neoplasm progression [Unknown]
  - Haematuria [Unknown]
  - Pulmonary embolism [Unknown]
  - Dyspnoea [Unknown]
  - Renal cell carcinoma [Unknown]
  - Escherichia sepsis [Unknown]
  - Gastrointestinal haemorrhage [Unknown]
